FAERS Safety Report 13005806 (Version 3)
Quarter: 2018Q3

REPORT INFORMATION
  Report Type: Spontaneous
  Country: US (occurrence: US)
  Receive Date: 20161207
  Receipt Date: 20180731
  Transmission Date: 20181010
  Serious: Yes (Other)
  Sender: FDA-Public Use
  Company Number: US-ENDO PHARMACEUTICALS INC.-2015-003860

PATIENT
  Age: 36 Year
  Sex: Male

DRUGS (11)
  1. DEPO?TESTOSTERONE [Suspect]
     Active Substance: TESTOSTERONE CYPIONATE
     Indication: ANDROGEN REPLACEMENT THERAPY
     Dosage: UNK UNKNOWN, UNKNOWN
     Route: 065
     Dates: start: 199606, end: 20070115
  2. TESTOPEL [Suspect]
     Active Substance: TESTOSTERONE
     Indication: ANDROGEN REPLACEMENT THERAPY
     Dosage: UNK UNKNOWN, UNKNOWN
     Route: 058
     Dates: start: 199606, end: 20070115
  3. ANDROGEL [Suspect]
     Active Substance: TESTOSTERONE
     Dosage: UNK UNKNOWN, UNKNOWN
     Route: 065
     Dates: start: 20120830, end: 20120929
  4. ANDRODERM [Suspect]
     Active Substance: TESTOSTERONE
     Indication: ANDROGEN REPLACEMENT THERAPY
     Dosage: UNK UNKNOWN, UNKNOWN
     Route: 065
     Dates: start: 199606, end: 20070115
  5. AXIRON [Suspect]
     Active Substance: TESTOSTERONE
     Indication: ANDROGEN REPLACEMENT THERAPY
     Dosage: UNK UNKNOWN, UNK
     Route: 065
     Dates: start: 199606, end: 20070115
  6. DELATESTRYL [Suspect]
     Active Substance: TESTOSTERONE ENANTHATE
     Indication: ANDROGEN REPLACEMENT THERAPY
     Dosage: UNK UNKNOWN, UNKNOWN
     Route: 030
     Dates: start: 199606, end: 20070115
  7. FORTESTA [Suspect]
     Active Substance: TESTOSTERONE
     Indication: ANDROGEN REPLACEMENT THERAPY
     Dosage: UNK UNKNOWN, UNKNOWN
     Route: 061
     Dates: start: 199606, end: 20070115
  8. ANDROGEL [Suspect]
     Active Substance: TESTOSTERONE
     Indication: ANDROGEN REPLACEMENT THERAPY
     Dosage: UNK UNKNOWN, UNKNOWN
     Route: 065
     Dates: start: 199606, end: 20070115
  9. TESTIM [Suspect]
     Active Substance: TESTOSTERONE
     Indication: ANDROGEN REPLACEMENT THERAPY
     Dosage: UNK UNKNOWN, UNKNOWN
     Route: 062
     Dates: start: 199606, end: 20070115
  10. ANDROGEL [Suspect]
     Active Substance: TESTOSTERONE
     Dosage: UNK UNKNOWN, UNKNOWN
     Route: 065
     Dates: start: 20121003, end: 20121102
  11. STRIANT [Suspect]
     Active Substance: TESTOSTERONE
     Indication: ANDROGEN REPLACEMENT THERAPY
     Dosage: UNK UNKNOWN, UNKNOWN
     Route: 002
     Dates: start: 199606, end: 20070115

REACTIONS (4)
  - Myocardial infarction [Unknown]
  - Deep vein thrombosis [Unknown]
  - Myocardial infarction [Unknown]
  - Pulmonary embolism [Unknown]

NARRATIVE: CASE EVENT DATE: 20010705
